FAERS Safety Report 8120172-5 (Version None)
Quarter: 2012Q1

REPORT INFORMATION
  Report Type: 
  Country: None (occurrence: None)
  Receive Date: 20120207
  Receipt Date: 20120124
  Transmission Date: 20120608
  Serious: Yes (Other)
  Sender: FDA-Public Use
  Company Number: CZ-CELGENEUS-217-C5013-12012452

PATIENT
  Sex: Male
  Weight: 81 kg

DRUGS (3)
  1. PREDNISONE [Suspect]
     Indication: MULTIPLE MYELOMA
     Dosage: 160 MILLIGRAM
     Route: 065
     Dates: start: 20080317, end: 20081211
  2. MELPHALAN HYDROCHLORIDE [Suspect]
     Indication: MULTIPLE MYELOMA
     Dosage: 12 MILLIGRAM
     Route: 065
     Dates: start: 20080317, end: 20081211
  3. LENALIDOMIDE [Suspect]
     Indication: MULTIPLE MYELOMA
     Route: 048

REACTIONS (1)
  - MYELODYSPLASTIC SYNDROME [None]
